FAERS Safety Report 7431281-8 (Version None)
Quarter: 2011Q2

REPORT INFORMATION
  Report Type: 
  Country: None (occurrence: None)
  Receive Date: 20110421
  Receipt Date: 20110121
  Transmission Date: 20111010
  Serious: No
  Sender: FDA-Public Use
  Company Number: US-TEVA-264312USA

PATIENT
  Sex: Female
  Weight: 63.56 kg

DRUGS (2)
  1. PLAN B ONE-STEP [Suspect]
     Indication: POST COITAL CONTRACEPTION
     Dosage: 1.5 MILLIGRAM;
     Route: 048
     Dates: start: 20101219, end: 20101219
  2. ADDERALL 10 [Concomitant]
     Indication: ATTENTION DEFICIT/HYPERACTIVITY DISORDER
     Route: 048

REACTIONS (3)
  - DRUG INEFFECTIVE [None]
  - PREGNANCY AFTER POST COITAL CONTRACEPTION [None]
  - ABDOMINAL PAIN UPPER [None]
